FAERS Safety Report 4996864-3 (Version None)
Quarter: 2006Q2

REPORT INFORMATION
  Report Type: 
  Country: None (occurrence: None)
  Receive Date: 20060509
  Receipt Date: 20060418
  Transmission Date: 20061013
  Serious: Yes (Other)
  Sender: FDA-Public Use
  Company Number: PHBS2006BR05821

PATIENT
  Sex: Female

DRUGS (6)
  1. ZOMETA [Suspect]
     Indication: METASTASES TO BONE
     Dosage: 4 MG, QMO
     Route: 065
     Dates: start: 20050301
  2. DECADRON [Concomitant]
  3. HIDANTAL [Concomitant]
  4. SERTRALINE [Concomitant]
  5. OMEPRAZOLE [Concomitant]
  6. HERCEPTIN [Concomitant]

REACTIONS (1)
  - OSTEONECROSIS [None]
